FAERS Safety Report 6292796-1 (Version None)
Quarter: 2009Q3

REPORT INFORMATION
  Report Type: 
  Country: None (occurrence: None)
  Receive Date: 20090731
  Receipt Date: 20090721
  Transmission Date: 20100115
  Serious: Yes (Hospitalization)
  Sender: FDA-Public Use
  Company Number: CN-ABBOTT-09P-035-0580080-00

PATIENT
  Sex: Male
  Weight: 55.5 kg

DRUGS (9)
  1. KALETRA [Suspect]
     Indication: ACQUIRED IMMUNODEFICIENCY SYNDROME
     Dosage: 800/200MG DAILY ; 400/100MG;3 CAPS BID
     Route: 048
     Dates: start: 20080829, end: 20080830
  2. KALETRA [Suspect]
     Dates: start: 20081008
  3. RIFAMPICIN [Concomitant]
     Indication: LYMPH NODE TUBERCULOSIS
     Dates: start: 20080101, end: 20081001
  4. ISONIAZID [Concomitant]
     Indication: LYMPH NODE TUBERCULOSIS
     Dates: start: 20080101
  5. ETHAMBUTOL [Concomitant]
     Indication: LYMPH NODE TUBERCULOSIS
     Dates: start: 20080101
  6. PYRAZINAMIDE [Concomitant]
     Indication: LYMPH NODE TUBERCULOSIS
     Dates: start: 20080101
  7. RIFABUTIN [Concomitant]
     Indication: LYMPH NODE TUBERCULOSIS
     Route: 048
     Dates: start: 20081013
  8. TENOFOVIR [Concomitant]
     Indication: ACQUIRED IMMUNODEFICIENCY SYNDROME
     Dates: start: 20080829
  9. LAMIVUDINE [Concomitant]
     Indication: ACQUIRED IMMUNODEFICIENCY SYNDROME
     Dates: start: 20080829

REACTIONS (2)
  - ANAEMIA [None]
  - CACHEXIA [None]
